FAERS Safety Report 8271136-2 (Version None)
Quarter: 2012Q2

REPORT INFORMATION
  Report Type: 
  Country: None (occurrence: None)
  Receive Date: 20120410
  Receipt Date: 20120410
  Transmission Date: 20120825
  Serious: Yes (Other)
  Sender: FDA-Public Use
  Company Number: US-PFIZER INC-2012084383

PATIENT
  Sex: Male
  Weight: 91.156 kg

DRUGS (3)
  1. LEVOFLOXACIN [Concomitant]
     Dosage: 250 MG, ONCE
     Dates: start: 20120329, end: 20120329
  2. CORVERT [Suspect]
     Indication: ATRIAL FIBRILLATION
     Dosage: 1 MG, 1X/DAY
     Dates: start: 20120329, end: 20120329
  3. LEVOFLOXACIN [Concomitant]
     Indication: PNEUMONIA
     Dosage: 750 MG, ONCE
     Dates: start: 20120328, end: 20120328

REACTIONS (1)
  - ESCHERICHIA INFECTION [None]
